FAERS Safety Report 21798921 (Version 1)
Quarter: 2022Q4

REPORT INFORMATION
  Report Type: Spontaneous
  Country: CA (occurrence: CA)
  Receive Date: 20221230
  Receipt Date: 20221230
  Transmission Date: 20230113
  Serious: Yes (Hospitalization)
  Sender: FDA-Public Use
  Company Number: None

PATIENT
  Age: 75 Year
  Sex: Female
  Weight: 60 kg

DRUGS (24)
  1. FLUOROURACIL [Suspect]
     Active Substance: FLUOROURACIL
     Indication: Colorectal cancer
  2. IRINOTECAN HYDROCHLORIDE [Suspect]
     Active Substance: IRINOTECAN HYDROCHLORIDE
     Indication: Colorectal cancer
     Dosage: SOLUTION INTRAVENOUS
  3. BEVACIZUMAB [Suspect]
     Active Substance: BEVACIZUMAB
     Indication: Colorectal cancer
  4. LEUCOVORIN [Suspect]
     Active Substance: LEUCOVORIN
     Indication: Colorectal cancer
  5. VITAMIN D [Concomitant]
     Active Substance: VITAMIN D NOS
  6. ACETAMINOPHEN [Concomitant]
     Active Substance: ACETAMINOPHEN
  7. ATROPINE [Concomitant]
     Active Substance: ATROPINE
  8. CALCIUM [Concomitant]
     Active Substance: CALCIUM
  9. CITALOPRAM [Concomitant]
     Active Substance: CITALOPRAM HYDROBROMIDE
  10. DECADRON [Concomitant]
     Active Substance: DEXAMETHASONE
  11. DENOSUMAB [Concomitant]
     Active Substance: DENOSUMAB
     Dosage: SOLUTION SUBCUTANEOUS
  12. DEXAMETHASONE [Concomitant]
     Active Substance: DEXAMETHASONE
  13. DIMENHYDRINATE [Concomitant]
     Active Substance: DIMENHYDRINATE
  14. FERROUS SULFATE [Concomitant]
     Active Substance: FERROUS SULFATE
  15. LOPERAMIDE [Concomitant]
     Active Substance: LOPERAMIDE
  16. LORAZEPAM [Concomitant]
     Active Substance: LORAZEPAM
     Route: 065
  17. MONTELUKAST [Concomitant]
     Active Substance: MONTELUKAST SODIUM
  18. MORPHINE [Concomitant]
     Active Substance: MORPHINE
  19. ONDANSETRON [Concomitant]
     Active Substance: ONDANSETRON
  20. OXAZEPAM [Concomitant]
     Active Substance: OXAZEPAM
  21. PANTOPRAZOLE [Concomitant]
     Active Substance: PANTOPRAZOLE
  22. PROCHLORPERAZINE [Concomitant]
     Active Substance: PROCHLORPERAZINE
  23. SANDOSTATIN [Concomitant]
     Active Substance: OCTREOTIDE ACETATE
  24. FLUOROURACIL [Suspect]
     Active Substance: FLUOROURACIL
     Indication: Colorectal cancer

REACTIONS (2)
  - Febrile neutropenia [Recovered/Resolved]
  - Large intestinal obstruction [Recovered/Resolved]
